FAERS Safety Report 9499972 (Version 1)
Quarter: 2013Q1

REPORT INFORMATION
  Report Type: Spontaneous
  Country: US (occurrence: None)
  Receive Date: 20130107
  Receipt Date: 20130107
  Transmission Date: 20140127
  Serious: Yes (Other)
  Sender: FDA-Public Use
  Company Number: PHEH2012US018420

PATIENT
  Sex: 0

DRUGS (1)
  1. GILENYA (FTY) CAPSULE [Suspect]
     Route: 048

REACTIONS (2)
  - Herpes zoster [None]
  - Varicella virus test positive [None]
